FAERS Safety Report 13420337 (Version 2)
Quarter: 2017Q2

REPORT INFORMATION
  Report Type: Spontaneous
  Country: US (occurrence: US)
  Receive Date: 20170407
  Receipt Date: 20170508
  Transmission Date: 20170830
  Serious: Yes (Other)
  Sender: FDA-Public Use
  Company Number: PHEH2017US009639

PATIENT
  Sex: Male

DRUGS (4)
  1. AMIODARONE [Suspect]
     Active Substance: AMIODARONE
     Indication: ATRIAL FIBRILLATION
     Dosage: UNK
     Route: 048
  2. AMIODARONE HYDROCHLORIDE. [Suspect]
     Active Substance: AMIODARONE HYDROCHLORIDE
     Indication: ATRIAL FIBRILLATION
     Dosage: UNK
     Route: 048
  3. AMIODARONE ZYDUS [Suspect]
     Active Substance: AMIODARONE
     Indication: ATRIAL FIBRILLATION
     Dosage: UNK
     Route: 048
  4. AMIODARONE TEVA [Suspect]
     Active Substance: AMIODARONE
     Indication: ATRIAL FIBRILLATION
     Dosage: UNK
     Route: 048

REACTIONS (18)
  - Disturbance in attention [Unknown]
  - Weight decreased [Unknown]
  - Photophobia [Unknown]
  - Headache [Unknown]
  - Asthenia [Unknown]
  - Fatigue [Unknown]
  - Irritability [Unknown]
  - Restlessness [Unknown]
  - Blindness unilateral [Unknown]
  - Visual impairment [Unknown]
  - Depression [Unknown]
  - Product use in unapproved indication [Unknown]
  - Dyspnoea [Unknown]
  - Nervousness [Unknown]
  - Tremor [Unknown]
  - Pulmonary toxicity [Unknown]
  - Gait disturbance [Unknown]
  - Thyroid disorder [Unknown]

NARRATIVE: CASE EVENT DATE: 201502
